FAERS Safety Report 5548643-6 (Version None)
Quarter: 2007Q4

REPORT INFORMATION
  Report Type: 
  Country: None (occurrence: None)
  Receive Date: 20071211
  Receipt Date: 20070409
  Transmission Date: 20080405
  Serious: No
  Sender: FDA-Public Use
  Company Number: US-AMGEN-KDL213642

PATIENT
  Sex: Male

DRUGS (8)
  1. ENBREL [Suspect]
     Indication: PSORIASIS
     Route: 058
     Dates: start: 20070220
  2. UNKNOWN [Suspect]
  3. OLUX [Suspect]
     Route: 061
  4. DIGOXIN [Concomitant]
  5. UNKNOWN [Concomitant]
  6. DOVONEX [Concomitant]
  7. BETAMETHASONE [Concomitant]
  8. CORMAX [Concomitant]

REACTIONS (6)
  - INJECTION SITE ERYTHEMA [None]
  - INJECTION SITE PAIN [None]
  - INJECTION SITE RASH [None]
  - INJECTION SITE SWELLING [None]
  - INJECTION SITE WARMTH [None]
  - PSORIASIS [None]
